FAERS Safety Report 8965973 (Version 2)
Quarter: 2013Q2

REPORT INFORMATION
  Report Type: Spontaneous
  Country: JP (occurrence: JP)
  Receive Date: 20121217
  Receipt Date: 20130607
  Transmission Date: 20140414
  Serious: Yes (Other)
  Sender: FDA-Public Use
  Company Number: JP-SP-2012-11930

PATIENT
  Age: 72 Year
  Sex: Male
  Weight: 56 kg

DRUGS (1)
  1. IMMUCYST [Suspect]
     Indication: TRANSITIONAL CELL CARCINOMA
     Dosage: 81 MG WITH SALINE 40 ML
     Route: 043
     Dates: start: 20110708, end: 20110812

REACTIONS (6)
  - Male genital tract tuberculosis [Recovered/Resolved]
  - Granuloma [Recovered/Resolved]
  - Prostatic abscess [Recovered/Resolved]
  - Dysuria [Recovered/Resolved]
  - Dysuria [Recovered/Resolved]
  - Prostatomegaly [Recovered/Resolved]
